FAERS Safety Report 17325882 (Version 2)
Quarter: 2020Q1

REPORT INFORMATION
  Report Type: Report from Study
  Country: US (occurrence: US)
  Receive Date: 20200127
  Receipt Date: 20200226
  Transmission Date: 20200409
  Serious: Yes (Other)
  Sender: FDA-Public Use
  Company Number: US-BAYER-2019-121810

PATIENT
  Age: 82 Year
  Sex: Female

DRUGS (4)
  1. NEXAVAR [Suspect]
     Active Substance: SORAFENIB
     Indication: OESOPHAGEAL CARCINOMA
     Dosage: UNK
  2. NEXAVAR [Suspect]
     Active Substance: SORAFENIB
     Indication: RHABDOMYOSARCOMA
     Dosage: 400 MG, BID
     Route: 048
     Dates: start: 20190629, end: 20200115
  3. NEXAVAR [Suspect]
     Active Substance: SORAFENIB
     Indication: BREAST CANCER
  4. NEXAVAR [Suspect]
     Active Substance: SORAFENIB
     Indication: GASTRIC CANCER

REACTIONS (10)
  - Product supply issue [Not Recovered/Not Resolved]
  - Limb injury [None]
  - Limb injury [Not Recovered/Not Resolved]
  - Sarcoma [Not Recovered/Not Resolved]
  - Vasoconstriction [Not Recovered/Not Resolved]
  - Off label use [None]
  - Product dose omission [Not Recovered/Not Resolved]
  - Impaired healing [Not Recovered/Not Resolved]
  - Skin wound [Not Recovered/Not Resolved]
  - Product use in unapproved indication [None]

NARRATIVE: CASE EVENT DATE: 20190625
